FAERS Safety Report 14959269 (Version 1)
Quarter: 2018Q2

REPORT INFORMATION
  Report Type: Spontaneous
  Country: FR (occurrence: FR)
  Receive Date: 20180531
  Receipt Date: 20180531
  Transmission Date: 20180711
  Serious: Yes (Hospitalization)
  Sender: FDA-Public Use
  Company Number: FR-TEVA-2018-FR-899850

PATIENT
  Age: 84 Year
  Sex: Female
  Weight: 43 kg

DRUGS (6)
  1. FLUOROURACIL. [Suspect]
     Active Substance: FLUOROURACIL
     Dosage: MOST RECENT DOSE WAS RECEIVED ON 11/SEP/2017?11 CYCLES
     Route: 040
     Dates: start: 20170313
  2. FLUOROURACIL. [Suspect]
     Active Substance: FLUOROURACIL
     Dosage: 580 MG, CYCLIC, 11 CYCLES
     Route: 040
     Dates: start: 20170911
  3. AVASTIN [Suspect]
     Active Substance: BEVACIZUMAB
     Indication: COLORECTAL CANCER METASTATIC
     Dosage: 220 MG, CYCLIC, TOTAL 11 CYCLES
     Dates: start: 20170911
  4. AVASTIN [Suspect]
     Active Substance: BEVACIZUMAB
     Dosage: TOTAL 11 CYCLES WERE RECIEVED, MOST RECENT DOSE WAS RECIEVED ON 11/SEP/2017
     Route: 042
     Dates: start: 20170313
  5. FLUOROURACIL. [Suspect]
     Active Substance: FLUOROURACIL
     Indication: COLORECTAL CANCER METASTATIC
     Route: 041
     Dates: start: 20170313
  6. ELVORINE [Suspect]
     Active Substance: LEUCOVORIN CALCIUM
     Indication: COLORECTAL CANCER METASTATIC
     Route: 065
     Dates: start: 20170313

REACTIONS (3)
  - Pleural effusion [Recovered/Resolved]
  - Cognitive disorder [Unknown]
  - General physical health deterioration [Not Recovered/Not Resolved]

NARRATIVE: CASE EVENT DATE: 20170911
